FAERS Safety Report 5878047-8 (Version None)
Quarter: 2008Q3

REPORT INFORMATION
  Report Type: 
  Country: None (occurrence: None)
  Receive Date: 20080909
  Receipt Date: 20080909
  Transmission Date: 20090109
  Serious: Yes (Hospitalization)
  Sender: FDA-Public Use
  Company Number: None

PATIENT
  Age: 39 Year
  Sex: Male
  Weight: 115.7 kg

DRUGS (2)
  1. VANCOMYCIN HYDROCHLORIDE [Suspect]
     Indication: EMPYEMA
     Dosage: 1750 MG BID IV
     Route: 042
     Dates: start: 20080714, end: 20080719
  2. KETOROLAC TROMETHAMINE [Suspect]
     Indication: PAIN
     Dosage: 15 MG PRN IV
     Route: 042
     Dates: start: 20080708, end: 20080719

REACTIONS (1)
  - RENAL FAILURE ACUTE [None]
